FAERS Safety Report 11624456 (Version 1)
Quarter: 2015Q4

REPORT INFORMATION
  Report Type: Spontaneous
  Country: RU (occurrence: RU)
  Receive Date: 20151013
  Receipt Date: 20151013
  Transmission Date: 20160304
  Serious: Yes (Hospitalization)
  Sender: FDA-Public Use
  Company Number: RU-ELI_LILLY_AND_COMPANY-RU201510002032

PATIENT
  Age: 30 Year
  Sex: Male

DRUGS (1)
  1. ZYPREXA [Suspect]
     Active Substance: OLANZAPINE
     Indication: PRODUCT USED FOR UNKNOWN INDICATION
     Route: 048

REACTIONS (1)
  - Electrocardiogram QT prolonged [Recovering/Resolving]
